FAERS Safety Report 7142793-9 (Version None)
Quarter: 2010Q4

REPORT INFORMATION
  Report Type: 
  Country: None (occurrence: None)
  Receive Date: 20101207
  Receipt Date: 20101130
  Transmission Date: 20110411
  Serious: Yes (Hospitalization)
  Sender: FDA-Public Use
  Company Number: AU-AMGEN-AUSSP2010001470

PATIENT

DRUGS (11)
  1. NPLATE [Suspect]
     Indication: IDIOPATHIC THROMBOCYTOPENIC PURPURA
     Dosage: 325MCG
     Dates: start: 20100625
  2. NPLATE [Suspect]
     Dosage: 625MCG
  3. NPLATE [Suspect]
     Dosage: 500MCG
  4. NPLATE [Suspect]
     Dosage: UNK
  5. PANTOPRAZOLE [Concomitant]
     Dosage: 40 MG, QD
  6. PRAZOSIN HCL [Concomitant]
     Dosage: 0.5 MG, QD
  7. OSTELIN                            /00107901/ [Concomitant]
     Dosage: 1000 A?G, QD
  8. DAPSONE [Concomitant]
     Dosage: 100 MG, QD
  9. CALTRATE                           /00108001/ [Concomitant]
     Dosage: 600 MG, QD
  10. GEMFIBROZIL [Concomitant]
     Dosage: 600 MG, QD
  11. PREDNISONE [Concomitant]
     Dosage: 10 MG, QD

REACTIONS (4)
  - DEEP VEIN THROMBOSIS [None]
  - PLATELET COUNT INCREASED [None]
  - PULMONARY EMBOLISM [None]
  - SYNCOPE [None]
